FAERS Safety Report 8494657-6 (Version None)
Quarter: 2012Q3

REPORT INFORMATION
  Report Type: 
  Country: None (occurrence: None)
  Receive Date: 20120709
  Receipt Date: 20120703
  Transmission Date: 20120928
  Serious: Yes (Other)
  Sender: FDA-Public Use
  Company Number: PHHY2012IT056997

PATIENT
  Sex: Female

DRUGS (1)
  1. RISPERIDONE [Suspect]
     Indication: SCHIZOPHRENIA
     Dosage: 4-6 MG, PER DAY

REACTIONS (10)
  - ACNE [None]
  - OSTEOPENIA [None]
  - OESTROGEN DEFICIENCY [None]
  - OLIGOMENORRHOEA [None]
  - ANOVULATORY CYCLE [None]
  - HYPERPROLACTINAEMIA [None]
  - BREAST TENDERNESS [None]
  - GALACTORRHOEA [None]
  - WEIGHT INCREASED [None]
  - BONE DENSITY DECREASED [None]
